FAERS Safety Report 9373939 (Version 1)
Quarter: 2013Q2

REPORT INFORMATION
  Report Type: Spontaneous
  Country: FR (occurrence: FR)
  Receive Date: 20130628
  Receipt Date: 20130628
  Transmission Date: 20140414
  Serious: Yes (Hospitalization, Other)
  Sender: FDA-Public Use
  Company Number: FR-BRISTOL-MYERS SQUIBB COMPANY-19042555

PATIENT
  Age: 56 Year
  Sex: Female

DRUGS (2)
  1. COUMADIN TABS 2 MG [Suspect]
     Indication: PULMONARY EMBOLISM
     Dosage: 1DF: 0.5 UNITS OF COUMADINE 2 MG
     Route: 048
  2. COUMADIN TABS 2 MG [Suspect]
     Indication: DEEP VEIN THROMBOSIS
     Dosage: 1DF: 0.5 UNITS OF COUMADINE 2 MG
     Route: 048

REACTIONS (4)
  - Craniocerebral injury [Recovered/Resolved]
  - Facial bones fracture [Recovered/Resolved]
  - Haematoma [Recovered/Resolved]
  - Fall [Recovered/Resolved]
